FAERS Safety Report 4350762-7 (Version None)
Quarter: 2004Q2

REPORT INFORMATION
  Report Type: 
  Country: None (occurrence: None)
  Receive Date: 20040430
  Receipt Date: 20040415
  Transmission Date: 20050107
  Serious: Yes (Life-Threatening)
  Sender: FDA-Public Use
  Company Number: US-BRISTOL-MYERS SQUIBB COMPANY-12562054

PATIENT
  Age: 48 Year
  Sex: Male

DRUGS (7)
  1. CETUXIMAB [Suspect]
     Indication: COLORECTAL CANCER
     Dosage: THERAPY INITIATED ON 20-AUG-2003
     Route: 042
     Dates: start: 20040414, end: 20040414
  2. IRINOTECAN [Suspect]
     Indication: COLORECTAL CANCER
     Dosage: THERAPY INITIATED ON 20-AUG-2003
     Route: 042
     Dates: start: 20040414, end: 20040414
  3. TYLENOL (CAPLET) [Concomitant]
     Indication: PREMEDICATION
     Dosage: PREMEDICATION
     Route: 048
     Dates: start: 20040414, end: 20040414
  4. BENADRYL [Concomitant]
     Indication: PREMEDICATION
     Dosage: PREMEDICATION
     Route: 042
     Dates: start: 20040414, end: 20040414
  5. DECADRON [Concomitant]
     Indication: PREMEDICATION
     Dosage: PREMEDICATIONS
     Route: 042
     Dates: start: 20040414, end: 20040414
  6. ATROPINE [Concomitant]
     Indication: PREMEDICATION
     Dosage: PREMEDICATION
     Route: 042
     Dates: start: 20040414, end: 20040414
  7. ALOXI [Concomitant]
     Indication: PREMEDICATION
     Route: 042
     Dates: start: 20040414, end: 20040414

REACTIONS (12)
  - ABDOMINAL PAIN [None]
  - ANXIETY [None]
  - BLOOD CALCIUM DECREASED [None]
  - BLOOD MAGNESIUM DECREASED [None]
  - BLOOD POTASSIUM DECREASED [None]
  - DEPRESSION [None]
  - DIARRHOEA [None]
  - ERYTHEMA [None]
  - FATIGUE [None]
  - HYPOMAGNESAEMIA [None]
  - PAIN IN EXTREMITY [None]
  - SWELLING [None]
